FAERS Safety Report 11818846 (Version 1)
Quarter: 2015Q4

REPORT INFORMATION
  Report Type: Spontaneous
  Country: US (occurrence: None)
  Receive Date: 20151209
  Receipt Date: 20151209
  Transmission Date: 20160305
  Serious: Yes (Hospitalization)
  Sender: FDA-Public Use
  Company Number: None

PATIENT
  Age: 91 Year
  Sex: Female
  Weight: 44.9 kg

DRUGS (12)
  1. ESCITALOPRAM [Suspect]
     Active Substance: ESCITALOPRAM OXALATE
     Indication: DEPRESSION
     Route: 048
  2. EXELON [Concomitant]
     Active Substance: RIVASTIGMINE TARTRATE
  3. XARELTO [Suspect]
     Active Substance: RIVAROXABAN
     Indication: PULMONARY EMBOLISM
     Route: 048
  4. ZEGERID [Concomitant]
     Active Substance: OMEPRAZOLE\SODIUM BICARBONATE
  5. VIT. B12 [Concomitant]
  6. MVI [Concomitant]
     Active Substance: VITAMINS
  7. ZOFRAN [Concomitant]
     Active Substance: ONDANSETRON HYDROCHLORIDE
  8. RESTORIL [Concomitant]
     Active Substance: TEMAZEPAM
  9. XANAX [Concomitant]
     Active Substance: ALPRAZOLAM
  10. NORVASC [Concomitant]
     Active Substance: AMLODIPINE BESYLATE
  11. FOLVITE [Concomitant]
     Active Substance: FOLIC ACID
  12. NORCO [Concomitant]
     Active Substance: ACETAMINOPHEN\HYDROCODONE BITARTRATE

REACTIONS (4)
  - Haemorrhagic anaemia [None]
  - Oesophagitis ulcerative [None]
  - Upper gastrointestinal haemorrhage [None]
  - Vitamin K deficiency [None]

NARRATIVE: CASE EVENT DATE: 20150519
